FAERS Safety Report 20752899 (Version 1)
Quarter: 2022Q2

REPORT INFORMATION
  Report Type: Spontaneous
  Country: US (occurrence: None)
  Receive Date: 20220426
  Receipt Date: 20220426
  Transmission Date: 20220721
  Serious: No
  Sender: FDA-Public Use
  Company Number: US-ROCHE-2913151

PATIENT
  Age: 72 Year
  Sex: Female

DRUGS (1)
  1. ESBRIET [Suspect]
     Active Substance: PIRFENIDONE
     Indication: Idiopathic pulmonary fibrosis
     Dosage: MORE DOSAGE INFORMATION: 2 (267MG TABLETS) 3 X DAY?TAKE 1 TABLET BY MOUTH 3 TIMES A DAY FOR 7 DAYS,
     Route: 048
     Dates: start: 202108, end: 20210912

REACTIONS (3)
  - Fatigue [Not Recovered/Not Resolved]
  - Asthenia [Unknown]
  - Upper respiratory tract infection [Not Recovered/Not Resolved]

NARRATIVE: CASE EVENT DATE: 20210816
